FAERS Safety Report 12797885 (Version 1)
Quarter: 2016Q3

REPORT INFORMATION
  Report Type: Spontaneous
  Country: US (occurrence: US)
  Receive Date: 20160930
  Receipt Date: 20160930
  Transmission Date: 20161109
  Serious: Yes (Other)
  Sender: FDA-Public Use
  Company Number: US-GLAXOSMITHKLINE-US2016142461

PATIENT
  Age: 69 Year
  Sex: Female

DRUGS (1)
  1. FLOVENT HFA [Suspect]
     Active Substance: FLUTICASONE PROPIONATE
     Indication: EOSINOPHILIC OESOPHAGITIS
     Dosage: 2 PUFF(S), BID
     Route: 050
     Dates: start: 201607, end: 20160912

REACTIONS (7)
  - Choking [Recovered/Resolved]
  - Drug effect decreased [Unknown]
  - Dysphagia [Recovered/Resolved]
  - Incorrect route of drug administration [Unknown]
  - Device use error [Unknown]
  - Abdominal discomfort [Unknown]
  - Oesophageal disorder [Recovered/Resolved]

NARRATIVE: CASE EVENT DATE: 201607
